FAERS Safety Report 25630488 (Version 1)
Quarter: 2025Q3

REPORT INFORMATION
  Report Type: Spontaneous
  Country: US (occurrence: US)
  Receive Date: 20250801
  Receipt Date: 20250801
  Transmission Date: 20251020
  Serious: No
  Sender: CSL BEHRING
  Company Number: US-BEH-2025213719

PATIENT
  Sex: Male

DRUGS (1)
  1. HIZENTRA [Suspect]
     Active Substance: HUMAN IMMUNOGLOBULIN G
     Indication: Hypogammaglobulinaemia
     Dosage: 6 G, QW
     Route: 058
     Dates: start: 202505

REACTIONS (5)
  - Anxiety [Unknown]
  - Therapy change [Unknown]
  - Needle issue [Unknown]
  - Urticaria [Unknown]
  - Agitation [Unknown]
